FAERS Safety Report 8449520-3 (Version None)
Quarter: 2012Q2

REPORT INFORMATION
  Report Type: 
  Country: None (occurrence: None)
  Receive Date: 20120619
  Receipt Date: 20120606
  Transmission Date: 20120825
  Serious: Yes (Other)
  Sender: FDA-Public Use
  Company Number: US-MYLANLABS-2012S1011613

PATIENT
  Age: 42 Year
  Sex: Male

DRUGS (1)
  1. TACROLIMUS [Suspect]
     Dosage: STABLE DOSE
     Route: 065

REACTIONS (2)
  - DRUG LEVEL CHANGED [None]
  - FOOD INTERACTION [None]
